FAERS Safety Report 8179904-2 (Version None)
Quarter: 2012Q1

REPORT INFORMATION
  Report Type: 
  Country: None (occurrence: None)
  Receive Date: 20120302
  Receipt Date: 20120221
  Transmission Date: 20120608
  Serious: Yes (Hospitalization)
  Sender: FDA-Public Use
  Company Number: IT-BRISTOL-MYERS SQUIBB COMPANY-16386104

PATIENT
  Age: 76 Year
  Sex: Female

DRUGS (3)
  1. MINOCIN [Suspect]
     Indication: INFECTION
     Dosage: MINOCIN 100MG STRNGTH
     Route: 048
     Dates: start: 20120105, end: 20120109
  2. RIFADIN [Suspect]
     Indication: INFECTION
     Dosage: RIFADIN 600MG STRENGTH
     Route: 048
     Dates: start: 20120105, end: 20120109
  3. GLUCOPHAGE [Suspect]
     Indication: TYPE 2 DIABETES MELLITUS
     Dosage: GLUCOPHAGE STRENGTH:500MG INTERRUPTED AND THEN REINTRODUCED
     Route: 048
     Dates: start: 19950101

REACTIONS (1)
  - HEPATITIS [None]
